FAERS Safety Report 8842105 (Version 1)
Quarter: 2012Q4

REPORT INFORMATION
  Report Type: 
  Country: CA (occurrence: CA)
  Receive Date: 20121016
  Receipt Date: 20121016
  Transmission Date: 20130627
  Serious: Yes (Death, Other)
  Sender: FDA-Public Use
  Company Number: PHHY2012CA078095

PATIENT
  Sex: Female

DRUGS (4)
  1. SANDOSTATIN LAR [Suspect]
     Indication: CARCINOID SYNDROME
     Dosage: 30 mg, once a month
     Route: 030
     Dates: start: 20080101
  2. SANDOSTATIN LAR [Suspect]
     Dosage: 40 mg, once a month
     Route: 030
     Dates: end: 20120919
  3. MORPHINE [Concomitant]
  4. TYLENOL [Concomitant]

REACTIONS (8)
  - Death [Fatal]
  - Diarrhoea [Unknown]
  - Weight decreased [Unknown]
  - Back pain [Unknown]
  - Discomfort [Unknown]
  - Moaning [Unknown]
  - Injection site haemorrhage [Unknown]
  - Injection site pain [Unknown]
